FAERS Safety Report 22180349 (Version 3)
Quarter: 2023Q2

REPORT INFORMATION
  Report Type: Spontaneous
  Country: GB (occurrence: GB)
  Receive Date: 20230406
  Receipt Date: 20230509
  Transmission Date: 20230721
  Serious: Yes (Other)
  Sender: FDA-Public Use
  Company Number: None

PATIENT
  Age: 62 Year
  Sex: Male
  Weight: 84 kg

DRUGS (6)
  1. ARIPIPRAZOLE [Suspect]
     Active Substance: ARIPIPRAZOLE
     Indication: Bipolar disorder
     Dosage: TAKE ONE DAILY, 10 MG, QD
     Dates: start: 20220324, end: 20220606
  2. DIAZEPAM [Concomitant]
     Active Substance: DIAZEPAM
     Indication: Ill-defined disorder
     Dosage: ONE TO BE TAKEN ONLY WHEN NEEDED. SHORT TERM US
     Dates: start: 20220608
  3. LITHIUM [Concomitant]
     Active Substance: LITHIUM
     Indication: Ill-defined disorder
     Dosage: 1 AT BEDTIME. BLOODS DUE EVERY 3 MONTHS - PLEAS...
     Dates: start: 20220205
  4. RIVAROXABAN [Concomitant]
     Active Substance: RIVAROXABAN
     Indication: Ill-defined disorder
     Dosage: TAKE ONE DAILY. DOSE REDUCED FOR LONG TERM MAIN
     Dates: start: 20220205
  5. ZOPICLONE [Concomitant]
     Active Substance: ZOPICLONE
     Indication: Ill-defined disorder
     Dosage: TAKE ONE TABLET AT NIGHT, NO MORE THAN THREE TIMES PER WEEK
     Dates: start: 20220421, end: 20220505
  6. ARIPIPRAZOLE [Suspect]
     Active Substance: ARIPIPRAZOLE
     Indication: Bipolar disorder
     Dates: start: 20220608

REACTIONS (1)
  - Mania [Unknown]

NARRATIVE: CASE EVENT DATE: 20220608
